FAERS Safety Report 7776811-1 (Version None)
Quarter: 2011Q3

REPORT INFORMATION
  Report Type: 
  Country: None (occurrence: None)
  Receive Date: 20110926
  Receipt Date: 20110805
  Transmission Date: 20111222
  Serious: No
  Sender: FDA-Public Use
  Company Number: US-BAYER-2011-041222

PATIENT
  Age: 24 Year
  Sex: Female
  Weight: 67.574 kg

DRUGS (1)
  1. MIRENA [Suspect]
     Indication: CONTRACEPTION
     Dosage: 20 MCG/24HR, CONT
     Route: 015
     Dates: start: 20110425, end: 20110509

REACTIONS (7)
  - BACK PAIN [None]
  - ABDOMINAL PAIN [None]
  - PAIN [None]
  - PELVIC PAIN [None]
  - VOMITING [None]
  - UTERINE SPASM [None]
  - NAUSEA [None]
